FAERS Safety Report 7210403-8 (Version None)
Quarter: 2011Q1

REPORT INFORMATION
  Report Type: 
  Country: None (occurrence: None)
  Receive Date: 20110105
  Receipt Date: 20101228
  Transmission Date: 20110831
  Serious: Yes (Hospitalization)
  Sender: FDA-Public Use
  Company Number: PHHO2010CO19675

PATIENT
  Sex: Male
  Weight: 76.2 kg

DRUGS (10)
  1. BLINDED ALISKIREN [Suspect]
     Indication: CARDIOVASCULAR DISORDER
     Dosage: CODE NOT BROKEN
     Route: 048
     Dates: start: 20090326
  2. CARVEDILOL [Concomitant]
     Indication: ANGINA PECTORIS
     Dosage: UNK
     Dates: end: 20101203
  3. LOVASTATIN [Concomitant]
     Indication: DYSLIPIDAEMIA
  4. VALSARTAN [Concomitant]
     Indication: HYPERTENSION
  5. BLINDED PLACEBO [Suspect]
     Indication: CARDIOVASCULAR DISORDER
     Dosage: CODE NOT BROKEN
     Route: 048
     Dates: start: 20090326
  6. METOPROLOL TARTRATE [Suspect]
     Indication: HYPERTENSION
     Dosage: 100 MG, QD
     Route: 048
     Dates: start: 20101117, end: 20101203
  7. BLINDED NO TREATMENT RECEIVED [Suspect]
     Indication: CARDIOVASCULAR DISORDER
     Dosage: CODE NOT BROKEN
     Route: 048
     Dates: start: 20090326
  8. AMLODIPINE [Suspect]
     Indication: HYPERTENSION
     Dosage: UNK
     Route: 048
     Dates: start: 20101111, end: 20101203
  9. ASPIRIN [Concomitant]
     Indication: CARDIOVASCULAR EVENT PROPHYLAXIS
  10. ENALAPRIL MALEATE [Concomitant]
     Indication: HYPERTENSION
     Dosage: UNK
     Dates: end: 20101203

REACTIONS (3)
  - ANGINA PECTORIS [None]
  - BRADYCARDIA [None]
  - DRUG INTERACTION [None]
